FAERS Safety Report 7494628-2 (Version None)
Quarter: 2011Q2

REPORT INFORMATION
  Report Type: 
  Country: None (occurrence: None)
  Receive Date: 20110520
  Receipt Date: 20110519
  Transmission Date: 20111010
  Serious: Yes (Life-Threatening, Hospitalization, Other)
  Sender: FDA-Public Use
  Company Number: PHHY2011ES42583

PATIENT
  Sex: Female

DRUGS (4)
  1. GLEEVEC [Suspect]
     Indication: ACUTE LYMPHOCYTIC LEUKAEMIA
     Dosage: 200 MG, DAILY
     Route: 048
     Dates: start: 20110105
  2. CYTARABINE [Suspect]
     Dosage: 1500 MG, UNK
     Dates: start: 20110105
  3. FLUDARABINE PHOSPHATE [Suspect]
     Indication: ACUTE LYMPHOCYTIC LEUKAEMIA
     Dosage: 22.5 MG, UNK
     Dates: start: 20110105
  4. GLEEVEC [Suspect]
     Dosage: 200 MG, DAILY
     Route: 048

REACTIONS (3)
  - GUILLAIN-BARRE SYNDROME [None]
  - NEUROPATHY PERIPHERAL [None]
  - NASOPHARYNGITIS [None]
